FAERS Safety Report 18474184 (Version 1)
Quarter: 2020Q4

REPORT INFORMATION
  Report Type: Report from Study
  Country: US (occurrence: US)
  Receive Date: 20201106
  Receipt Date: 20201106
  Transmission Date: 20210114
  Serious: Yes (Hospitalization, Other)
  Sender: FDA-Public Use
  Company Number: US-IPSEN BIOPHARMACEUTICALS, INC.-2018-12687

PATIENT
  Age: 14 Year
  Sex: Male
  Weight: 45.7 kg

DRUGS (12)
  1. HYDROMORPHONE [Concomitant]
     Active Substance: HYDROMORPHONE
     Indication: PROCEDURAL PAIN
     Dosage: PRN
     Dates: start: 20190411, end: 20190412
  2. DYSPORT [Suspect]
     Active Substance: ABOBOTULINUMTOXINA
     Indication: MUSCLE SPASTICITY
     Dosage: 1000 IU (HIP FLEXORS (100 IU), HAMSTRINGS (350 IU) AND OTHER UNSPECIFIED SITES (550 IU)
     Route: 030
     Dates: start: 20171228, end: 20171228
  3. VISTARIL [Concomitant]
     Active Substance: HYDROXYZINE PAMOATE
     Indication: MUSCLE SPASMS
     Dosage: PRN
     Dates: start: 20190416, end: 20190628
  4. DYSPORT [Suspect]
     Active Substance: ABOBOTULINUMTOXINA
     Indication: MUSCLE SPASTICITY
  5. BACLOFEN. [Concomitant]
     Active Substance: BACLOFEN
     Indication: MUSCLE SPASTICITY
     Route: 048
     Dates: start: 20171102
  6. ACETOMINOPHEN [Concomitant]
     Active Substance: ACETAMINOPHEN
     Indication: PROCEDURAL PAIN
     Dosage: PRN
     Dates: start: 20190411, end: 20190821
  7. DYSPORT [Suspect]
     Active Substance: ABOBOTULINUMTOXINA
     Indication: OFF LABEL USE
  8. DIAZEPAM. [Concomitant]
     Active Substance: DIAZEPAM
     Indication: SEIZURE
     Route: 054
  9. DIAZEPAM. [Concomitant]
     Active Substance: DIAZEPAM
     Indication: MUSCLE SPASMS
     Dosage: PRN
     Dates: start: 20190411, end: 20190821
  10. GABAPENTIN. [Concomitant]
     Active Substance: GABAPENTIN
     Indication: MUSCLE SPASMS
     Route: 048
     Dates: start: 20191211
  11. ROPIVICAINE [Concomitant]
     Active Substance: ROPIVACAINE
     Indication: PROCEDURAL PAIN
     Dosage: CONTINUOUS
     Route: 037
     Dates: start: 20190411, end: 20190415
  12. CLONIDINE. [Concomitant]
     Active Substance: CLONIDINE
     Indication: PROCEDURAL PAIN
     Dosage: CONTINUOUS
     Route: 037
     Dates: start: 20190411, end: 20190415

REACTIONS (11)
  - Off label use [Unknown]
  - Pyrexia [Recovered/Resolved]
  - Pyrexia [Recovered/Resolved]
  - Gait disturbance [Recovered/Resolved]
  - Muscle spasticity [Recovered/Resolved]
  - Arthralgia [Recovered/Resolved]
  - Procedural pain [Recovered/Resolved]
  - Developmental hip dysplasia [Recovered/Resolved]
  - Constipation [Not Recovered/Not Resolved]
  - Patella fracture [Recovered/Resolved]
  - Tibial torsion [Recovered/Resolved]

NARRATIVE: CASE EVENT DATE: 20171228
